FAERS Safety Report 4403754-3 (Version None)
Quarter: 2004Q3

REPORT INFORMATION
  Report Type: 
  Country: None (occurrence: None)
  Receive Date: 20040719
  Receipt Date: 20040706
  Transmission Date: 20050211
  Serious: Yes (Hospitalization)
  Sender: FDA-Public Use
  Company Number: 231886KO4USA

PATIENT
  Age: 47 Year
  Sex: Female

DRUGS (1)
  1. REBIF [Suspect]
     Indication: MULTIPLE SCLEROSIS
     Dosage: 44 MCG, 3 IN 1 WEEKS, SUBCUTANEOUS
     Route: 058
     Dates: start: 20020101

REACTIONS (7)
  - ABDOMINAL ABSCESS [None]
  - APPENDICECTOMY [None]
  - CHOLECYSTITIS [None]
  - CYSTITIS [None]
  - DIVERTICULAR PERFORATION [None]
  - DIVERTICULITIS [None]
  - URINARY TRACT INFECTION [None]
